FAERS Safety Report 5037859-3 (Version None)
Quarter: 2006Q2

REPORT INFORMATION
  Report Type: 
  Country: None (occurrence: None)
  Receive Date: 20060613
  Receipt Date: 20060407
  Transmission Date: 20061013
  Serious: Yes (Hospitalization)
  Sender: FDA-Public Use
  Company Number: US-JNJFOC-20060205317

PATIENT
  Age: 19 Year
  Sex: Female
  Weight: 78.4723 kg

DRUGS (3)
  1. ORTHO EVRA [Suspect]
     Indication: CONTRACEPTION
     Dosage: 1 DOSE(S), 3 IN 4 WEEK, TRANSDERMAL
     Route: 062
     Dates: start: 20051003
  2. LAMICTAL [Concomitant]
  3. LEXAPRO (SSRI) [Concomitant]

REACTIONS (2)
  - PELVIC INFLAMMATORY DISEASE [None]
  - PULMONARY EMBOLISM [None]
